FAERS Safety Report 10776569 (Version 1)
Quarter: 2015Q1

REPORT INFORMATION
  Report Type: Spontaneous
  Country: US (occurrence: None)
  Receive Date: 20150205
  Receipt Date: 20150205
  Transmission Date: 20150721
  Serious: No
  Sender: FDA-Public Use
  Company Number: None

PATIENT
  Age: 49 Year
  Sex: Female

DRUGS (1)
  1. COPAXONE [Suspect]
     Active Substance: GLATIRAMER ACETATE
     Indication: MULTIPLE SCLEROSIS
     Dosage: INJECT 1 PFS
     Route: 058

REACTIONS (3)
  - Muscle tightness [None]
  - Feeling cold [None]
  - Chills [None]

NARRATIVE: CASE EVENT DATE: 20150204
